FAERS Safety Report 10482587 (Version 1)
Quarter: 2014Q3

REPORT INFORMATION
  Report Type: Spontaneous
  Country: US (occurrence: US)
  Receive Date: 20140929
  Receipt Date: 20140929
  Transmission Date: 20150326
  Serious: Yes (Hospitalization)
  Sender: FDA-Public Use
  Company Number: US-ELI_LILLY_AND_COMPANY-US201409008097

PATIENT
  Age: 19 Year
  Sex: Female
  Weight: 71.2 kg

DRUGS (1)
  1. HUMALOG [Suspect]
     Active Substance: INSULIN LISPRO
     Indication: PRODUCT USED FOR UNKNOWN INDICATION
     Dosage: UNK
     Route: 058

REACTIONS (10)
  - Road traffic accident [Unknown]
  - Blood glucose decreased [Recovered/Resolved]
  - Speech disorder [Recovered/Resolved]
  - Impaired gastric emptying [Unknown]
  - Gait disturbance [Unknown]
  - Stress [Unknown]
  - Diabetic complication [Unknown]
  - Diabetic ketoacidosis [Unknown]
  - Malaise [Unknown]
  - Blood glucose increased [Unknown]

NARRATIVE: CASE EVENT DATE: 201403
